FAERS Safety Report 6499204-6 (Version None)
Quarter: 2009Q4

REPORT INFORMATION
  Report Type: 
  Country: None (occurrence: None)
  Receive Date: 20091215
  Receipt Date: 20091209
  Transmission Date: 20100525
  Serious: Yes (Disabling)
  Sender: FDA-Public Use
  Company Number: US-ELI_LILLY_AND_COMPANY-US200912002457

PATIENT
  Sex: Male

DRUGS (2)
  1. HUMULIN N [Suspect]
  2. HUMULIN N [Suspect]

REACTIONS (1)
  - FINGER AMPUTATION [None]
